FAERS Safety Report 4898607-0 (Version None)
Quarter: 2006Q1

REPORT INFORMATION
  Report Type: 
  Country: None (occurrence: None)
  Receive Date: 20060130
  Receipt Date: 20060120
  Transmission Date: 20060701
  Serious: Yes (Hospitalization, Other)
  Sender: FDA-Public Use
  Company Number: 2005-12-0428

PATIENT
  Age: 64 Year
  Sex: Male
  Weight: 61 kg

DRUGS (6)
  1. PEG-INTRON [Suspect]
     Indication: HEPATITIS C
     Dosage: 100 MCG QW SUBCUTANEOUS
     Route: 058
     Dates: start: 20050117, end: 20051205
  2. REBETOL [Suspect]
     Indication: HEPATITIS C
     Dosage: 800-600* MG ORAL
     Route: 048
     Dates: start: 20050117, end: 20050829
  3. REBETOL [Suspect]
     Indication: HEPATITIS C
     Dosage: 800-600* MG ORAL
     Route: 048
     Dates: start: 20050117, end: 20051205
  4. REBETOL [Suspect]
     Indication: HEPATITIS C
     Dosage: 800-600* MG ORAL
     Route: 048
     Dates: start: 20050830, end: 20051205
  5. KETAS (IBUDILAST) CAPSULES [Concomitant]
  6. AMLODIPINE BESILATE TABLETS [Concomitant]

REACTIONS (3)
  - ARTERIOSCLEROSIS [None]
  - CEREBRAL INFARCTION [None]
  - CEREBRAL THROMBOSIS [None]
